FAERS Safety Report 8301624-1 (Version None)
Quarter: 2012Q2

REPORT INFORMATION
  Report Type: 
  Country: None (occurrence: None)
  Receive Date: 20120420
  Receipt Date: 20120416
  Transmission Date: 20120825
  Serious: Yes (Hospitalization)
  Sender: FDA-Public Use
  Company Number: FR-SANOFI-AVENTIS-2012SA026368

PATIENT
  Age: 87 Year
  Sex: Male

DRUGS (2)
  1. RIFADIN [Suspect]
     Indication: OSTEITIS
     Route: 048
     Dates: start: 20120315, end: 20120326
  2. FUCIDINE CAP [Suspect]
     Indication: OSTEITIS
     Route: 048
     Dates: start: 20120315, end: 20120326

REACTIONS (1)
  - VASCULAR PURPURA [None]
